FAERS Safety Report 6834863-7 (Version None)
Quarter: 2010Q3

REPORT INFORMATION
  Report Type: 
  Country: None (occurrence: None)
  Receive Date: 20100712
  Receipt Date: 20070418
  Transmission Date: 20110219
  Serious: No
  Sender: FDA-Public Use
  Company Number: US-PFIZER INC-2007031606

PATIENT
  Sex: Female

DRUGS (1)
  1. CHANTIX [Suspect]
     Dates: start: 20070401

REACTIONS (4)
  - DIARRHOEA [None]
  - HEADACHE [None]
  - INCORRECT DOSE ADMINISTERED [None]
  - NAUSEA [None]
